FAERS Safety Report 12088416 (Version 1)
Quarter: 2016Q1

REPORT INFORMATION
  Report Type: Spontaneous
  Country: IT (occurrence: IT)
  Receive Date: 20160218
  Receipt Date: 20160218
  Transmission Date: 20160526
  Serious: Yes (Other)
  Sender: FDA-Public Use
  Company Number: IT-ROCHE-1710909

PATIENT
  Age: 75 Year
  Sex: Male

DRUGS (14)
  1. ZOLOFT [Concomitant]
     Active Substance: SERTRALINE HYDROCHLORIDE
     Dosage: 50 MG FILM-COATED TABLETS^ 30 SCORED TABLETS
     Route: 048
  2. SOLOSA [Concomitant]
     Active Substance: GLIMEPIRIDE
     Dosage: 4 MG TABLETS 30 TABLETS IN A PVC/AL BLISTER PACK
     Route: 048
  3. ACTOS [Concomitant]
     Active Substance: PIOGLITAZONE HYDROCHLORIDE
     Dosage: 15 MG TABLETS 28 TABLETS, ORAL USE
     Route: 048
  4. TORVAST [Concomitant]
     Active Substance: ATORVASTATIN
     Dosage: ^20^, 30 TABLETS 20 MG
     Route: 048
  5. RIVOTRIL [Suspect]
     Active Substance: CLONAZEPAM
     Indication: PAIN
     Dosage: 2.5 MG/ML ORAL DROPS, SOLUTION 10 ML BOTTLE
     Route: 048
  6. LASIX [Concomitant]
     Active Substance: FUROSEMIDE
     Dosage: 25 MG 30 TABLETS
     Route: 048
  7. METFORALMILLE [Concomitant]
     Active Substance: METFORMIN HYDROCHLORIDE
  8. AVODART [Concomitant]
     Active Substance: DUTASTERIDE
     Dosage: 0.5 MG 30 CAPSULES IN A PVC/PVDC BLISTER PACK
     Route: 048
  9. SILODYX [Concomitant]
     Active Substance: SILODOSIN
     Dosage: 4 MG - HARD CAPSULE - ORAL USE - BLISTER PACK
     Route: 048
  10. CARDIOASPIRIN [Concomitant]
     Active Substance: ASPIRIN
     Dosage: ^100 MG GASTRO-RESISTANT TABLETS^ 30 TABLETS
     Route: 048
  11. RIVOTRIL [Suspect]
     Active Substance: CLONAZEPAM
     Indication: ARTHROPATHY
  12. RAMIPRIL. [Concomitant]
     Active Substance: RAMIPRIL
  13. STILNOX [Concomitant]
     Active Substance: ZOLPIDEM TARTRATE
     Dosage: 10 MG FILM-COATED TABLETS 30 TABLETS
     Route: 048
  14. PRADAXA [Concomitant]
     Active Substance: DABIGATRAN ETEXILATE MESYLATE
     Dosage: 110 MG  BLISTER PACK (AL/AL) 30 X 1 CAPSULE
     Route: 048

REACTIONS (5)
  - Dysarthria [Recovering/Resolving]
  - Deformity [Recovering/Resolving]
  - Malaise [Recovering/Resolving]
  - Confusional state [Recovering/Resolving]
  - Overdose [Unknown]

NARRATIVE: CASE EVENT DATE: 20150505
